FAERS Safety Report 9776276 (Version 2)
Quarter: 2014Q1

REPORT INFORMATION
  Report Type: Report from Study
  Country: US (occurrence: US)
  Receive Date: 20131220
  Receipt Date: 20140106
  Transmission Date: 20141002
  Serious: Yes (Other)
  Sender: FDA-Public Use
  Company Number: US-ABBVIE-13P-163-1177984-00

PATIENT
  Age: 18 Year
  Sex: Female

DRUGS (9)
  1. HUMIRA [Suspect]
     Indication: CROHN^S DISEASE
     Dates: start: 201305, end: 201305
  2. HUMIRA [Suspect]
     Dosage: 2 WEEKS AFTER INITIAL DOSE
     Dates: start: 2013, end: 2013
  3. HUMIRA [Suspect]
     Dosage: START 2 WEEKS AFTER 80 MG DOSE
     Dates: start: 2013
  4. NEXIUM [Concomitant]
     Indication: GASTROOESOPHAGEAL REFLUX DISEASE
  5. NEURONTIN [Concomitant]
     Indication: FIBROMYALGIA
  6. NEURONTIN [Concomitant]
     Indication: FIBROMYALGIA
  7. ZANTAC [Concomitant]
     Indication: GASTROOESOPHAGEAL REFLUX DISEASE
  8. LEVBID [Concomitant]
     Indication: GASTROINTESTINAL PAIN
  9. MIRENA [Concomitant]
     Indication: CONTRACEPTION

REACTIONS (5)
  - Endometriosis [Unknown]
  - Wrong technique in drug usage process [Unknown]
  - Injection site reaction [Not Recovered/Not Resolved]
  - Injection site bruising [Not Recovered/Not Resolved]
  - Injection site pain [Not Recovered/Not Resolved]
